FAERS Safety Report 8911618 (Version 1)
Quarter: 2012Q4

REPORT INFORMATION
  Report Type: 
  Country: GB (occurrence: GB)
  Receive Date: 20121116
  Receipt Date: 20121116
  Transmission Date: 20130627
  Serious: Yes (Death, Hospitalization, Other)
  Sender: FDA-Public Use
  Company Number: GB-PFIZER INC-HQ0640108MAY2001

PATIENT
  Age: 82 Year
  Sex: Female
  Weight: 40 kg

DRUGS (5)
  1. IBUPROFEN [Suspect]
     Indication: OSTEOARTHRITIS
     Dosage: 200 mg, 3x/day
     Route: 048
     Dates: start: 200001, end: 20010409
  2. ASPIRIN [Suspect]
     Indication: AMAUROSIS FUGAX
     Dosage: 75 mg, 1x/day
     Route: 048
     Dates: start: 19960821, end: 20010409
  3. CO-CODAMOL [Concomitant]
     Dosage: UNK
     Route: 048
  4. DOCUSATE [Concomitant]
     Route: 048
  5. FUROSEMIDE [Concomitant]
     Route: 048

REACTIONS (4)
  - Gastritis haemorrhagic [Fatal]
  - Haematemesis [Fatal]
  - Diarrhoea [Fatal]
  - Death [Fatal]
